FAERS Safety Report 5249999-4 (Version None)
Quarter: 2007Q1

REPORT INFORMATION
  Report Type: 
  Country: None (occurrence: None)
  Receive Date: 20070228
  Receipt Date: 20060119
  Transmission Date: 20070707
  Serious: No
  Sender: FDA-Public Use
  Company Number: US-GLAXOSMITHKLINE-A0590080A

PATIENT
  Age: 64 Year
  Sex: Male

DRUGS (8)
  1. LAMICTAL [Suspect]
     Indication: BIPOLAR DISORDER
     Dosage: 500MG PER DAY
     Route: 048
  2. LIPITOR [Concomitant]
  3. LEXAPRO [Concomitant]
  4. ARICEPT [Concomitant]
  5. NAMENDA [Concomitant]
  6. BLOOD PRESSURE MEDICATION [Concomitant]
  7. ENALAPRIL MALEATE [Concomitant]
  8. TESTOSTERONE PATCH [Concomitant]

REACTIONS (3)
  - DIZZINESS [None]
  - PRURITUS [None]
  - RASH [None]
